FAERS Safety Report 16613654 (Version 6)
Quarter: 2020Q3

REPORT INFORMATION
  Report Type: Other
  Country: BR (occurrence: BR)
  Receive Date: 20190723
  Receipt Date: 20200821
  Transmission Date: 20201102
  Serious: Yes (Other)
  Sender: FDA-Public Use
  Company Number: BR-ROCHE-1995204

PATIENT
  Age: 72 Year
  Sex: Male
  Weight: 65 kg

DRUGS (13)
  1. ESBRIET [Suspect]
     Active Substance: PIRFENIDONE
     Dosage: 6 CAPSULES DAILY
     Route: 048
     Dates: start: 20170913
  2. BROMAZEPAM [Concomitant]
     Active Substance: BROMAZEPAM
  3. TAMSULOSIN HYDROCHLORIDE. [Concomitant]
     Active Substance: TAMSULOSIN HYDROCHLORIDE
  4. ESBRIET [Suspect]
     Active Substance: PIRFENIDONE
     Indication: IDIOPATHIC PULMONARY FIBROSIS
     Route: 065
     Dates: start: 20170629
  5. JANUMET [Concomitant]
     Active Substance: METFORMIN HYDROCHLORIDE\SITAGLIPTIN PHOSPHATE
  6. ESBRIET [Suspect]
     Active Substance: PIRFENIDONE
     Indication: IDIOPATHIC PULMONARY FIBROSIS
     Route: 048
     Dates: start: 20170303
  7. GINKOBA [Concomitant]
     Active Substance: GINKGO
     Dosage: AT LUNCH
  8. PANTOPRAZOLE [Concomitant]
     Active Substance: PANTOPRAZOLE
     Indication: PRODUCT USED FOR UNKNOWN INDICATION
     Dosage: ONE TABLET IN FASTING
  9. TADALAFIL. [Concomitant]
     Active Substance: TADALAFIL
     Dosage: IN THE MORNING
  10. ATENOLOL. [Concomitant]
     Active Substance: ATENOLOL
  11. INSULIN [Concomitant]
     Active Substance: INSULIN NOS
  12. BROMOPRIDE [Concomitant]
     Active Substance: BROMOPRIDE
     Dosage: AT LUNCH
  13. ESBRIET [Suspect]
     Active Substance: PIRFENIDONE
     Route: 048

REACTIONS (19)
  - Chest pain [Unknown]
  - Decreased appetite [Not Recovered/Not Resolved]
  - Senile dementia [Not Recovered/Not Resolved]
  - Fatigue [Recovering/Resolving]
  - Intentional product misuse [Unknown]
  - Dyspnoea [Not Recovered/Not Resolved]
  - Fall [Unknown]
  - Joint swelling [Not Recovered/Not Resolved]
  - Treatment noncompliance [Unknown]
  - Osteoarthritis [Not Recovered/Not Resolved]
  - Dizziness [Unknown]
  - Nervousness [Unknown]
  - Depression [Not Recovered/Not Resolved]
  - Eating disorder [Not Recovered/Not Resolved]
  - Tremor [Not Recovered/Not Resolved]
  - Nausea [Not Recovered/Not Resolved]
  - Diabetes mellitus inadequate control [Recovered/Resolved]
  - Respiratory disorder [Unknown]
  - Joint injury [Unknown]

NARRATIVE: CASE EVENT DATE: 201911
